FAERS Safety Report 4640695-0 (Version None)
Quarter: 2005Q2

REPORT INFORMATION
  Report Type: 
  Country: None (occurrence: None)
  Receive Date: 20050325
  Receipt Date: 20040223
  Transmission Date: 20051028
  Serious: Yes (Hospitalization, Other)
  Sender: FDA-Public Use
  Company Number: 2004-00735

PATIENT
  Age: 79 Year
  Sex: Female
  Weight: 70.3 kg

DRUGS (4)
  1. FERRLECIT [Suspect]
     Dosage: 250 MG, OVER 2 HOURS, INTRAVENOUS
     Route: 042
     Dates: start: 20040122, end: 20040122
  2. AVANDIA [Concomitant]
  3. ALLOPURINOL [Concomitant]
  4. HYDROCHLOROTHIAZIDE [Concomitant]

REACTIONS (6)
  - BLOOD PRESSURE DECREASED [None]
  - DIARRHOEA [None]
  - DIZZINESS [None]
  - HEART RATE DECREASED [None]
  - NAUSEA [None]
  - VOMITING [None]
